FAERS Safety Report 8268972-5 (Version None)
Quarter: 2012Q2

REPORT INFORMATION
  Report Type: 
  Country: None (occurrence: None)
  Receive Date: 20120409
  Receipt Date: 20120406
  Transmission Date: 20120825
  Serious: No
  Sender: FDA-Public Use
  Company Number: US-BAYER-2012-033935

PATIENT
  Sex: Male
  Weight: 100 kg

DRUGS (7)
  1. VITAMIN D [Concomitant]
     Dosage: 2000 UNIT
  2. BETASERON [Suspect]
     Dosage: 0.3 MG
  3. LANSOPRAZOLE [Concomitant]
     Dosage: 3 MG/ML
  4. EXFORGE [Concomitant]
     Dosage: 5- 160 MG
  5. CITALOPRAM HYDROBROMIDE [Concomitant]
     Dosage: 20 MG
  6. SIMVASTATIN [Concomitant]
     Dosage: 40 MG
  7. HYDROCHLOROTHIAZIDE [Concomitant]
     Dosage: 50 MG

REACTIONS (2)
  - VISUAL IMPAIRMENT [None]
  - TEMPERATURE REGULATION DISORDER [None]
